FAERS Safety Report 21362300 (Version 2)
Quarter: 2022Q4

REPORT INFORMATION
  Report Type: Report from Study
  Country: CA (occurrence: CA)
  Receive Date: 20220922
  Receipt Date: 20221026
  Transmission Date: 20230113
  Serious: Yes (Other)
  Sender: FDA-Public Use
  Company Number: CA-NOVARTISPH-PHHY2016CA160773

PATIENT
  Age: 11 Year
  Sex: Female

DRUGS (7)
  1. ILARIS [Suspect]
     Active Substance: CANAKINUMAB
     Indication: Still^s disease
     Dosage: 100 MG, (EVERY 4 WEEKS)
     Route: 058
     Dates: start: 20161027
  2. ILARIS [Suspect]
     Active Substance: CANAKINUMAB
     Dosage: 120 OT, EVERY 12 WEEKS
     Route: 058
     Dates: start: 20161118
  3. ILARIS [Suspect]
     Active Substance: CANAKINUMAB
     Dosage: 120 MG (12 WEEKS)
     Route: 058
     Dates: end: 202103
  4. ILARIS [Suspect]
     Active Substance: CANAKINUMAB
     Dosage: 120 OT, EVERY 12 WEEKS
     Route: 058
     Dates: start: 20210503, end: 20210503
  5. ILARIS [Suspect]
     Active Substance: CANAKINUMAB
     Dosage: 150 MG, QMO
     Route: 058
     Dates: start: 20220823
  6. ILARIS [Suspect]
     Active Substance: CANAKINUMAB
     Dosage: 150 MG Q 28 DAYS FOR 6 DOSES.
     Route: 058
  7. CANAKINUMAB [Concomitant]
     Active Substance: CANAKINUMAB
     Indication: Product used for unknown indication
     Dosage: 1 DOSAGE FORM, QMO
     Route: 058
     Dates: start: 20220823

REACTIONS (9)
  - Arthritis [Unknown]
  - Condition aggravated [Unknown]
  - Myalgia [Unknown]
  - Musculoskeletal stiffness [Unknown]
  - White blood cell count increased [Unknown]
  - C-reactive protein increased [Unknown]
  - Inflammatory marker increased [Unknown]
  - Product prescribing error [Unknown]
  - Off label use [Unknown]

NARRATIVE: CASE EVENT DATE: 20161101
